FAERS Safety Report 17901201 (Version 1)
Quarter: 2020Q2

REPORT INFORMATION
  Report Type: Spontaneous
  Country: IT (occurrence: IT)
  Receive Date: 20200616
  Receipt Date: 20200616
  Transmission Date: 20200714
  Serious: Yes (Death)
  Sender: FDA-Public Use
  Company Number: IT-PFIZER INC-2020232177

PATIENT
  Age: 77 Year
  Sex: Male
  Weight: 70 kg

DRUGS (3)
  1. FLONTALEXIN [Suspect]
     Active Substance: CIPROFLOXACIN LACTATE
     Indication: URINARY TRACT INFECTION
     Dosage: UNK
     Route: 048
  2. ZOMETA [Suspect]
     Active Substance: ZOLEDRONIC ACID
     Dosage: UNK
     Route: 042
     Dates: start: 20200506
  3. SUTENT [Suspect]
     Active Substance: SUNITINIB MALATE
     Indication: RENAL CANCER METASTATIC
     Dosage: UNK
     Route: 048
     Dates: end: 20200506

REACTIONS (7)
  - Hyperfibrinogenaemia [Fatal]
  - Skin laceration [Fatal]
  - Dermatitis bullous [Fatal]
  - Skin ulcer [Fatal]
  - Antithrombin III deficiency [Fatal]
  - Full blood count decreased [Unknown]
  - Sepsis [Fatal]

NARRATIVE: CASE EVENT DATE: 20200508
